FAERS Safety Report 8846973 (Version 1)
Quarter: 2012Q4

REPORT INFORMATION
  Report Type: Spontaneous
  Country: US (occurrence: None)
  Receive Date: 20121017
  Receipt Date: 20121017
  Transmission Date: 20130627
  Serious: No
  Sender: FDA-Public Use
  Company Number: None

PATIENT
  Age: 60 Year
  Sex: Female
  Weight: 62.6 kg

DRUGS (1)
  1. MOVIPREP [Suspect]
     Dosage: SPLIT DOSE
     Route: 048
     Dates: start: 20120119, end: 20120120

REACTIONS (7)
  - Malaise [None]
  - Dehydration [None]
  - Abasia [None]
  - Abdominal distension [None]
  - Eructation [None]
  - Flatulence [None]
  - Gastric disorder [None]
